FAERS Safety Report 7898366-3 (Version None)
Quarter: 2011Q4

REPORT INFORMATION
  Report Type: 
  Country: None (occurrence: None)
  Receive Date: 20111107
  Receipt Date: 20111101
  Transmission Date: 20120403
  Serious: Yes (Disabling, Other)
  Sender: FDA-Public Use
  Company Number: DE-PFIZER INC-2011207707

PATIENT
  Age: 71 Year
  Sex: Male
  Weight: 87.5 kg

DRUGS (2)
  1. ATORVASTATIN CALCIUM [Suspect]
     Indication: HYPERCHOLESTEROLAEMIA
     Dosage: 20 MG, 1X/DAY
     Route: 048
     Dates: start: 20050317, end: 20101108
  2. ATORVASTATIN CALCIUM [Suspect]
     Dosage: 40 MG, UNK
     Route: 048
     Dates: start: 20101109, end: 20110811

REACTIONS (5)
  - BLOOD POTASSIUM INCREASED [None]
  - HEARING IMPAIRED [None]
  - BLOOD URIC ACID INCREASED [None]
  - HAEMATOCRIT DECREASED [None]
  - BLOOD CHOLESTEROL INCREASED [None]
